FAERS Safety Report 8309491-7 (Version None)
Quarter: 2012Q2

REPORT INFORMATION
  Report Type: 
  Country: None (occurrence: None)
  Receive Date: 20120425
  Receipt Date: 20120420
  Transmission Date: 20120825
  Serious: Yes (Other)
  Sender: FDA-Public Use
  Company Number: US-PFIZER INC-2012098579

PATIENT
  Sex: Female
  Weight: 80.726 kg

DRUGS (3)
  1. LYRICA [Suspect]
     Dosage: 50 MG, DAILY
     Route: 048
     Dates: start: 20120325, end: 20120402
  2. LYRICA [Suspect]
     Dosage: 75 MG DAILY
     Route: 048
     Dates: start: 20120403, end: 20120403
  3. LYRICA [Suspect]
     Indication: NEURALGIA
     Dosage: 25 MG, DAILY
     Route: 048
     Dates: start: 20120324, end: 20120324

REACTIONS (11)
  - SKIN BURNING SENSATION [None]
  - FATIGUE [None]
  - NERVOUSNESS [None]
  - CHEST DISCOMFORT [None]
  - NEUROPATHY PERIPHERAL [None]
  - ANXIETY [None]
  - CHEST PAIN [None]
  - DYSPNOEA [None]
  - MUSCULAR WEAKNESS [None]
  - ASTHENIA [None]
  - MYALGIA [None]
